FAERS Safety Report 13339484 (Version 2)
Quarter: 2017Q1

REPORT INFORMATION
  Report Type: Spontaneous
  Country: US (occurrence: US)
  Receive Date: 20170315
  Receipt Date: 20170323
  Transmission Date: 20170428
  Serious: No
  Sender: FDA-Public Use
  Company Number: US-009507513-1703USA000921

PATIENT
  Sex: Female
  Weight: 67.57 kg

DRUGS (1)
  1. NEXPLANON [Suspect]
     Active Substance: ETONOGESTREL
     Dosage: 1 IMPLANT IN THE LEFT ARM / EVERY 3 YEARS
     Route: 059
     Dates: start: 20170223

REACTIONS (6)
  - Administration site discomfort [Recovered/Resolved]
  - Haematoma [Unknown]
  - Migration of implanted drug [Not Recovered/Not Resolved]
  - Complication associated with device [Not Recovered/Not Resolved]
  - Implant site bruising [Recovering/Resolving]
  - Implant site swelling [Recovered/Resolved]

NARRATIVE: CASE EVENT DATE: 2017
